FAERS Safety Report 6383390-2 (Version None)
Quarter: 2009Q3

REPORT INFORMATION
  Report Type: 
  Country: None (occurrence: None)
  Receive Date: 20090929
  Receipt Date: 20090929
  Transmission Date: 20100115
  Serious: No
  Sender: FDA-Public Use
  Company Number: None

PATIENT

DRUGS (3)
  1. VIAGRA [Suspect]
  2. CIALIS [Suspect]
  3. LEVITRA [Suspect]

REACTIONS (1)
  - MEDICATION ERROR [None]
